FAERS Safety Report 23131007 (Version 1)
Quarter: 2023Q4

REPORT INFORMATION
  Report Type: Spontaneous
  Country: US (occurrence: None)
  Receive Date: 20231031
  Receipt Date: 20231031
  Transmission Date: 20240109
  Serious: No
  Sender: FDA-Public Use
  Company Number: None

PATIENT
  Age: 27 Week

DRUGS (2)
  1. RACEPINEPHRINE [Suspect]
     Active Substance: RACEPINEPHRINE
     Dosage: OTHER STRENGTH : 2.25%;?
  2. BUDESONIDE [Suspect]
     Active Substance: BUDESONIDE
     Dosage: OTHER STRENGTH : 0.5MG/2 ML;?

REACTIONS (8)
  - Wrong product administered [None]
  - Product selection error [None]
  - Product packaging confusion [None]
  - Pallor [None]
  - Livedo reticularis [None]
  - Lethargy [None]
  - Heart rate increased [None]
  - Blood pressure increased [None]
